FAERS Safety Report 5221654-6 (Version None)
Quarter: 2007Q1

REPORT INFORMATION
  Report Type: 
  Country: None (occurrence: None)
  Receive Date: 20070129
  Receipt Date: 20070116
  Transmission Date: 20070707
  Serious: Yes (Disabling)
  Sender: FDA-Public Use
  Company Number: PHRM2007FR00573

PATIENT
  Age: 37 Year
  Sex: Female

DRUGS (5)
  1. NAVELBINE [Concomitant]
  2. TAXOL [Concomitant]
  3. GEMZAR [Concomitant]
  4. HERCEPTIN [Concomitant]
  5. ZOMETA [Suspect]
     Indication: METASTASES TO BONE
     Dosage: 4 MG, QMO
     Route: 042
     Dates: start: 20040915, end: 20050515

REACTIONS (3)
  - GINGIVAL ABSCESS [None]
  - OSTEONECROSIS [None]
  - TOOTH EXTRACTION [None]
